FAERS Safety Report 5121903-9 (Version None)
Quarter: 2006Q4

REPORT INFORMATION
  Report Type: 
  Country: None (occurrence: None)
  Receive Date: 20061006
  Receipt Date: 20060908
  Transmission Date: 20070319
  Serious: Yes (Disabling)
  Sender: FDA-Public Use
  Company Number: JP-MERCK-0609USA02935

PATIENT
  Age: 68 Year
  Sex: Male
  Weight: 71 kg

DRUGS (5)
  1. ZOCOR [Suspect]
     Indication: HYPERLIPIDAEMIA
     Route: 048
     Dates: start: 20020301, end: 20060816
  2. ZOCOR [Suspect]
     Route: 048
     Dates: start: 20060820, end: 20060821
  3. ZOCOR [Suspect]
     Indication: HYPERCHOLESTEROLAEMIA
     Route: 048
     Dates: start: 20020301, end: 20060816
  4. ZOCOR [Suspect]
     Route: 048
     Dates: start: 20060820, end: 20060821
  5. BLOPRESS [Concomitant]
     Indication: HYPERTENSION
     Route: 048
     Dates: start: 20050201

REACTIONS (4)
  - BLISTER [None]
  - GAIT DISTURBANCE [None]
  - IMPAIRED HEALING [None]
  - PAIN IN EXTREMITY [None]
